FAERS Safety Report 4516229-8 (Version None)
Quarter: 2004Q4

REPORT INFORMATION
  Report Type: 
  Country: None (occurrence: None)
  Receive Date: 20041201
  Receipt Date: 20041201
  Transmission Date: 20050328
  Serious: Yes (Disabling)
  Sender: FDA-Public Use
  Company Number: None

PATIENT
  Age: 50 Year
  Sex: Female
  Weight: 113.3993 kg

DRUGS (2)
  1. NARDIL [Suspect]
     Indication: ANXIETY
     Dosage: 15 MG 3X DAILY ORAL
     Route: 048
     Dates: start: 20041030, end: 20041112
  2. NARDIL [Suspect]
     Indication: DEPRESSION
     Dosage: 15 MG 3X DAILY ORAL
     Route: 048
     Dates: start: 20041030, end: 20041112

REACTIONS (4)
  - ANXIETY [None]
  - FEELING ABNORMAL [None]
  - INAPPROPRIATE AFFECT [None]
  - PHARMACEUTICAL PRODUCT COMPLAINT [None]
